FAERS Safety Report 17624519 (Version 2)
Quarter: 2020Q4

REPORT INFORMATION
  Report Type: Report from Study
  Country: CA (occurrence: CA)
  Receive Date: 20200403
  Receipt Date: 20201022
  Transmission Date: 20210113
  Serious: Yes (Death)
  Sender: FDA-Public Use
  Company Number: CA-HLS-202000294

PATIENT
  Age: 56 Year
  Sex: Male

DRUGS (1)
  1. CLOZARIL [Suspect]
     Active Substance: CLOZAPINE
     Indication: PRODUCT USED FOR UNKNOWN INDICATION
     Dosage: 500/DAY
     Route: 065
     Dates: start: 20010911

REACTIONS (2)
  - Product dose omission issue [Unknown]
  - Completed suicide [Fatal]

NARRATIVE: CASE EVENT DATE: 202003
